FAERS Safety Report 5900790-2 (Version None)
Quarter: 2008Q3

REPORT INFORMATION
  Report Type: 
  Country: None (occurrence: None)
  Receive Date: 20080929
  Receipt Date: 20080917
  Transmission Date: 20090109
  Serious: Yes (Hospitalization, Other)
  Sender: FDA-Public Use
  Company Number: FR-JNJFOC-20080602798

PATIENT
  Sex: Female
  Weight: 13 kg

DRUGS (2)
  1. TOPIRAMATE [Suspect]
     Indication: EPILEPSY
     Route: 048
  2. DEPAKENE [Concomitant]
     Indication: EPILEPSY
     Route: 048

REACTIONS (5)
  - BALANCE DISORDER [None]
  - DRUG EFFECT DECREASED [None]
  - EPILEPSY [None]
  - GAIT DISTURBANCE [None]
  - LACK OF SPONTANEOUS SPEECH [None]
